FAERS Safety Report 8790039 (Version 2)
Quarter: 2012Q4

REPORT INFORMATION
  Report Type: 
  Country: BR (occurrence: BR)
  Receive Date: 20120917
  Receipt Date: 20121029
  Transmission Date: 20130627
  Serious: Yes (Death)
  Sender: FDA-Public Use
  Company Number: BR-NOVOPROD-359453

PATIENT
  Age: 54 Year
  Sex: Male

DRUGS (1)
  1. NOVORAPID [Suspect]
     Indication: TYPE 2 DIABETES MELLITUS
     Dosage: UNK
     Route: 065

REACTIONS (7)
  - Hepatic cirrhosis [Fatal]
  - Multi-organ failure [Fatal]
  - Pain [None]
  - Oedema peripheral [None]
  - Weight decreased [None]
  - Decreased appetite [None]
  - Bedridden [None]
